FAERS Safety Report 14742660 (Version 2)
Quarter: 2018Q2

REPORT INFORMATION
  Report Type: Spontaneous
  Country: US (occurrence: US)
  Receive Date: 20180410
  Receipt Date: 20180420
  Transmission Date: 20180711
  Serious: Yes (Life-Threatening, Disabling, Other)
  Sender: FDA-Public Use
  Company Number: US-BRISTOL-MYERS SQUIBB COMPANY-BMS-2018-030524

PATIENT
  Age: 68 Year
  Sex: Male
  Weight: 83.91 kg

DRUGS (4)
  1. OXYCODONE [Concomitant]
     Active Substance: OXYCODONE
     Indication: PAIN
     Dosage: UNK, QD
     Route: 065
  2. AMIODARONE [Suspect]
     Active Substance: AMIODARONE
     Indication: PRODUCT USED FOR UNKNOWN INDICATION
     Route: 042
  3. ELIQUIS [Suspect]
     Active Substance: APIXABAN
     Indication: CEREBROVASCULAR ACCIDENT PROPHYLAXIS
     Dosage: 5 MG, BID
     Route: 048
     Dates: start: 201705
  4. ACITRETIN. [Suspect]
     Active Substance: ACITRETIN
     Indication: SKIN DISORDER
     Dosage: UNK UNK, QOD
     Route: 065

REACTIONS (7)
  - Myalgia [Unknown]
  - Ear disorder [Unknown]
  - Pityriasis rubra pilaris [Recovering/Resolving]
  - Arthralgia [Unknown]
  - Anaphylactic reaction [Unknown]
  - Contusion [Unknown]
  - Eye disorder [Unknown]

NARRATIVE: CASE EVENT DATE: 20170609
